FAERS Safety Report 8782207 (Version 1)
Quarter: 2012Q4

REPORT INFORMATION
  Report Type: 
  Country: US (occurrence: US)
  Receive Date: 20120913
  Receipt Date: 20120913
  Transmission Date: 20130627
  Serious: No
  Sender: FDA-Public Use
  Company Number: US-VERTEX PHARMACEUTICAL INC.-AE-2012-010468

PATIENT
  Age: 36 Year
  Sex: Female
  Weight: 127.27 kg

DRUGS (7)
  1. INCIVEK [Suspect]
     Indication: HEPATITIS C
     Route: 048
     Dates: start: 20120629
  2. RIBAVIRIN [Concomitant]
     Indication: HEPATITIS C
     Route: 048
     Dates: start: 20120629
  3. PEGASYS [Concomitant]
     Indication: HEPATITIS C
     Route: 058
     Dates: start: 20120629
  4. METFORMIN [Concomitant]
     Indication: DIABETES MELLITUS
  5. GLIPIZIDE [Concomitant]
     Indication: DIABETES MELLITUS
  6. FLEXERIL [Concomitant]
     Indication: PAIN
  7. AMBIEN [Concomitant]

REACTIONS (3)
  - Pyrexia [Not Recovered/Not Resolved]
  - Chills [Not Recovered/Not Resolved]
  - Feeling abnormal [Not Recovered/Not Resolved]
